FAERS Safety Report 17461408 (Version 1)
Quarter: 2020Q1

REPORT INFORMATION
  Report Type: Spontaneous
  Country: US (occurrence: US)
  Receive Date: 20200226
  Receipt Date: 20200226
  Transmission Date: 20200409
  Serious: Yes (Death)
  Sender: FDA-Public Use
  Company Number: US-ROCHE-2557785

PATIENT
  Age: 57 Year
  Sex: Male

DRUGS (2)
  1. HYDROMORPHONE [Concomitant]
     Active Substance: HYDROMORPHONE
     Route: 065
  2. ESBRIET [Suspect]
     Active Substance: PIRFENIDONE
     Indication: IDIOPATHIC PULMONARY FIBROSIS
     Dosage: 1 TAB, 2 TAB AND 3 TAB
     Route: 048
     Dates: start: 20180810, end: 20200220

REACTIONS (1)
  - Death [Fatal]

NARRATIVE: CASE EVENT DATE: 20200220
